FAERS Safety Report 11310270 (Version 2)
Quarter: 2016Q4

REPORT INFORMATION
  Report Type: Spontaneous
  Country: JP (occurrence: JP)
  Receive Date: 20150724
  Receipt Date: 20161220
  Transmission Date: 20170206
  Serious: Yes (Death, Other)
  Sender: FDA-Public Use
  Company Number: JP-MALLINCKRODT-T201503559

PATIENT
  Age: 72 Year
  Sex: Male
  Weight: 69 kg

DRUGS (9)
  1. METHADONE [Suspect]
     Active Substance: METHADONE HYDROCHLORIDE
     Indication: CANCER PAIN
     Dosage: 5 MG (10 MG DAILY DOSE)
     Route: 048
     Dates: start: 20140602, end: 20140613
  2. OXINORM [Concomitant]
     Active Substance: OXYCODONE HYDROCHLORIDE
     Dosage: 5 MG, PRN
     Route: 048
     Dates: start: 20140601
  3. NOVAMIN [Concomitant]
     Active Substance: PROCHLORPERAZINE MALEATE
     Dosage: 15 MG
     Route: 048
     Dates: end: 20140604
  4. MYSLEE [Concomitant]
     Active Substance: ZOLPIDEM TARTRATE
     Dosage: 10 MG
     Route: 048
     Dates: end: 20140618
  5. CALONAL [Concomitant]
     Active Substance: ACETAMINOPHEN
     Indication: ANALGESIC THERAPY
     Dosage: 2400 MG
     Route: 048
     Dates: end: 20140618
  6. NAUZELIN [Concomitant]
     Active Substance: DOMPERIDONE
     Dosage: 30 MG
     Route: 048
     Dates: end: 20140604
  7. TAKEPRON [Concomitant]
     Active Substance: LANSOPRAZOLE
     Dosage: 30 MG
     Route: 048
     Dates: end: 20140618
  8. METHADONE [Suspect]
     Active Substance: METHADONE HYDROCHLORIDE
     Dosage: 10 MG (10 MG DAILY DOSE)
     Route: 048
     Dates: start: 20140614, end: 20140711
  9. OXYCONTIN [Concomitant]
     Active Substance: OXYCODONE HYDROCHLORIDE
     Indication: ANALGESIC THERAPY
     Dosage: 30 MG
     Route: 048
     Dates: end: 20140610

REACTIONS (3)
  - Delirium [Recovering/Resolving]
  - Rectal cancer [Fatal]
  - Somnolence [Recovering/Resolving]

NARRATIVE: CASE EVENT DATE: 20140608
